FAERS Safety Report 4562861-5 (Version None)
Quarter: 2005Q1

REPORT INFORMATION
  Report Type: 
  Country: None (occurrence: None)
  Receive Date: 20050121
  Receipt Date: 20050103
  Transmission Date: 20050727
  Serious: Yes (Hospitalization)
  Sender: FDA-Public Use
  Company Number: US_0501109813

PATIENT
  Age: 29 Year
  Sex: Female

DRUGS (4)
  1. HUMALOG [Suspect]
     Indication: DIABETES MELLITUS INSULIN-DEPENDENT
     Dosage: 109.8 U DAY
  2. HYDROCORTISONE [Concomitant]
  3. LEVOTHYROXINE [Concomitant]
  4. FLUDROCORTISONE [Concomitant]

REACTIONS (9)
  - CAESAREAN SECTION [None]
  - DIABETIC NEPHROPATHY [None]
  - DRUG EXPOSURE DURING PREGNANCY [None]
  - HYPERURICAEMIA [None]
  - LARGE FOR DATES BABY [None]
  - MICROALBUMINURIA [None]
  - OEDEMA PERIPHERAL [None]
  - PRE-ECLAMPSIA [None]
  - PROTEINURIA [None]
